FAERS Safety Report 13935302 (Version 1)
Quarter: 2017Q3

REPORT INFORMATION
  Report Type: Spontaneous
  Country: FR (occurrence: FR)
  Receive Date: 20170905
  Receipt Date: 20170905
  Transmission Date: 20171127
  Serious: Yes (Other)
  Sender: FDA-Public Use
  Company Number: FR-BAYER-2017-166954

PATIENT
  Age: 29 Year
  Sex: Female

DRUGS (1)
  1. MIRENA [Suspect]
     Active Substance: LEVONORGESTREL
     Indication: CONTRACEPTION
     Dosage: 20 MCG/24HR, CONT
     Route: 015
     Dates: start: 20150115, end: 20170517

REACTIONS (13)
  - Asthenia [Recovered/Resolved]
  - Alopecia [Recovered/Resolved]
  - Nervousness [Recovered/Resolved]
  - Back pain [Recovered/Resolved]
  - Metrorrhagia [Recovered/Resolved]
  - Ovarian cyst [Recovered/Resolved]
  - Depression [Recovered/Resolved]
  - Visual impairment [Recovered/Resolved]
  - Acne [Recovered/Resolved]
  - Loss of libido [Recovered/Resolved]
  - Breast pain [Recovered/Resolved]
  - Mood altered [Recovered/Resolved]
  - Headache [Recovered/Resolved]

NARRATIVE: CASE EVENT DATE: 20150115
